FAERS Safety Report 9307600 (Version 1)
Quarter: 2013Q2

REPORT INFORMATION
  Report Type: Spontaneous
  Country: US (occurrence: US)
  Receive Date: 20130524
  Receipt Date: 20130524
  Transmission Date: 20140414
  Serious: No
  Sender: FDA-Public Use
  Company Number: US-PFIZER INC-2013158259

PATIENT
  Age: 63 Year
  Sex: Male
  Weight: 127 kg

DRUGS (8)
  1. LYRICA [Suspect]
     Indication: NEUROPATHY PERIPHERAL
     Dosage: 50 MG, DAILY
     Dates: start: 20130517, end: 20130519
  2. ACIPHEX [Concomitant]
     Indication: GASTROOESOPHAGEAL REFLUX DISEASE
     Dosage: 10-20 MG DAILY
     Dates: start: 2003
  3. METFORMIN [Concomitant]
     Indication: DIABETES MELLITUS
     Dosage: 500 MG, DAILY
     Dates: start: 2012
  4. METOPROLOL [Concomitant]
     Indication: HYPERTENSION
     Dosage: 50 MG, DAILY
  5. OXYCODONE [Concomitant]
     Indication: ARTHRALGIA
     Dosage: UNK, 6X/DAY
     Dates: start: 201305
  6. HYDROCODONE [Concomitant]
     Indication: ARTHRALGIA
     Dosage: UNK, EVERY 4 HOURS
  7. IBUPROFEN [Concomitant]
     Indication: ARTHRALGIA
     Dosage: 200 MG, 6X/DAY
  8. ACETAMINOPHEN [Concomitant]
     Indication: ARTHRALGIA
     Dosage: 225 MG, UNK

REACTIONS (3)
  - Burning sensation [Not Recovered/Not Resolved]
  - Paraesthesia [Not Recovered/Not Resolved]
  - Chills [Not Recovered/Not Resolved]
